FAERS Safety Report 19394186 (Version 6)
Quarter: 2022Q1

REPORT INFORMATION
  Report Type: Report from Study
  Country: US (occurrence: None)
  Receive Date: 20210609
  Receipt Date: 20220330
  Transmission Date: 20220424
  Serious: Yes (Hospitalization)
  Sender: FDA-Public Use
  Company Number: US-EISAI MEDICAL RESEARCH-EC-2021-094117

PATIENT
  Age: 73 Year
  Sex: Male
  Weight: 91.9 kg

DRUGS (14)
  1. LENVATINIB [Suspect]
     Active Substance: LENVATINIB
     Indication: Hepatocellular carcinoma
     Route: 048
     Dates: start: 20210407, end: 20210607
  2. LENVATINIB [Suspect]
     Active Substance: LENVATINIB
     Dosage: DOSE REDUCED
     Route: 048
     Dates: start: 20210608
  3. QUAVONLIMAB [Suspect]
     Active Substance: QUAVONLIMAB
     Indication: Hepatocellular carcinoma
     Dosage: 25MG/400 MG
     Route: 041
     Dates: start: 20210407, end: 20210407
  4. QUAVONLIMAB [Suspect]
     Active Substance: QUAVONLIMAB
     Dosage: 25MG/400 MG
     Route: 041
     Dates: start: 20210518, end: 20210518
  5. QUAVONLIMAB [Suspect]
     Active Substance: QUAVONLIMAB
     Dosage: 25MG/400 MG
     Route: 041
     Dates: start: 20210629
  6. PRINIVIL [Concomitant]
     Active Substance: LISINOPRIL
     Dates: start: 20190416
  7. SIMVASTATIN [Concomitant]
     Active Substance: SIMVASTATIN
     Dates: start: 20201105
  8. GLIPIZIDE [Concomitant]
     Active Substance: GLIPIZIDE
     Dates: start: 20201214
  9. VITAMIN B COMPLEX [Concomitant]
     Active Substance: CYANOCOBALAMIN\DEXPANTHENOL\NIACINAMIDE\PYRIDOXINE HYDROCHLORIDE\RIBOFLAVIN 5^-PHOSPHATE SODIUM\THIA
     Dates: start: 2020
  10. METFORMIN [Concomitant]
     Active Substance: METFORMIN HYDROCHLORIDE
     Dates: start: 2020
  11. ZOFRAN [Concomitant]
     Active Substance: ONDANSETRON HYDROCHLORIDE
     Dates: start: 20210415
  12. PEMBROLIZUMAB [Suspect]
     Active Substance: PEMBROLIZUMAB
  13. PEMBROLIZUMAB [Suspect]
     Active Substance: PEMBROLIZUMAB
  14. PEMBROLIZUMAB [Suspect]
     Active Substance: PEMBROLIZUMAB

REACTIONS (1)
  - Hepatic encephalopathy [Recovered/Resolved]

NARRATIVE: CASE EVENT DATE: 20210531
